FAERS Safety Report 6234986-X (Version None)
Quarter: 2009Q2

REPORT INFORMATION
  Report Type: 
  Country: None (occurrence: None)
  Receive Date: 20090618
  Receipt Date: 20090604
  Transmission Date: 20091009
  Serious: Yes (Other)
  Sender: FDA-Public Use
  Company Number: DE-MYLANLABS-2009S1009950

PATIENT
  Age: 24 Year
  Sex: Male
  Weight: 70 kg

DRUGS (3)
  1. AZATHIOPRINE [Suspect]
     Indication: CROHN'S DISEASE
     Route: 048
  2. AKNENORMIN [Suspect]
     Indication: ACNE CONGLOBATA
     Route: 048
     Dates: start: 20080401
  3. URSO FALK [Concomitant]
     Indication: CROHN'S DISEASE
     Route: 048

REACTIONS (1)
  - LIMB DISCOMFORT [None]
